FAERS Safety Report 8833132 (Version 1)
Quarter: 2012Q4

REPORT INFORMATION
  Report Type: 
  Country: US (occurrence: US)
  Receive Date: 20121010
  Receipt Date: 20121010
  Transmission Date: 20130627
  Serious: Yes (Other)
  Sender: FDA-Public Use
  Company Number: US-ASTELLAS-2012US007911

PATIENT
  Age: 60 Year
  Sex: Male

DRUGS (3)
  1. LEXISCAN [Suspect]
     Indication: SCAN MYOCARDIAL PERFUSION
     Dosage: Total dose over 20-25 sec
     Route: 042
     Dates: start: 20120917, end: 20120917
  2. KEPPRA [Concomitant]
     Indication: CONVULSION
     Dosage: UNK
     Route: 065
  3. GABAPENTIN [Concomitant]
     Indication: CONVULSION
     Dosage: UNK
     Route: 065

REACTIONS (1)
  - Psychogenic seizure [Recovered/Resolved]
